FAERS Safety Report 23502486 (Version 1)
Quarter: 2024Q1

REPORT INFORMATION
  Report Type: Spontaneous
  Country: US (occurrence: US)
  Receive Date: 20240208
  Receipt Date: 20240208
  Transmission Date: 20240409
  Serious: No
  Sender: FDA-Public Use
  Company Number: US-INTRA-CELLULAR THERAPIES, INC.-2023ICT00453

PATIENT
  Age: 28 Year
  Sex: Female
  Weight: 54.422 kg

DRUGS (5)
  1. CAPLYTA [Suspect]
     Active Substance: LUMATEPERONE
     Indication: Insomnia
     Dosage: UNK
     Dates: start: 202303
  2. ARISTADA [Suspect]
     Active Substance: ARIPIPRAZOLE LAUROXIL
     Indication: Psychotic disorder
     Dosage: 662 MG, 1X/MONTH
     Route: 030
     Dates: start: 202303
  3. ARISTADA INITIO [Suspect]
     Active Substance: ARIPIPRAZOLE LAUROXIL
     Indication: Psychotic disorder
     Dosage: 675 MG, ONCE
     Route: 030
     Dates: start: 202303, end: 202303
  4. TEMAZEPAM [Suspect]
     Active Substance: TEMAZEPAM
     Indication: Insomnia
     Dosage: 2 CAPSULES
     Dates: start: 202303
  5. ABILIFY [Concomitant]
     Active Substance: ARIPIPRAZOLE

REACTIONS (3)
  - Hypersomnia [Unknown]
  - Off label use [Not Recovered/Not Resolved]
  - Unevaluable event [Unknown]

NARRATIVE: CASE EVENT DATE: 20230301
